FAERS Safety Report 9558266 (Version 1)
Quarter: 2013Q3

REPORT INFORMATION
  Report Type: Spontaneous
  Country: MX (occurrence: MX)
  Receive Date: 20130926
  Receipt Date: 20130926
  Transmission Date: 20140515
  Serious: Yes (Other)
  Sender: FDA-Public Use
  Company Number: PHHY2013MX072683

PATIENT
  Age: 87 Year
  Sex: Female

DRUGS (3)
  1. STALEVO [Suspect]
     Indication: PARKINSON^S DISEASE
     Dosage: 3 DF (200/150/37.5 MG), QD
     Route: 048
     Dates: start: 2011
  2. ATEMPERATOR [Concomitant]
     Indication: PARKINSON^S DISEASE
     Dosage: 2 DF, QD
     Dates: start: 1991
  3. SIFROL [Concomitant]
     Indication: PARKINSON^S DISEASE
     Dosage: 3 DF, QD

REACTIONS (3)
  - Aphasia [Not Recovered/Not Resolved]
  - Hearing impaired [Not Recovered/Not Resolved]
  - Disease progression [Not Recovered/Not Resolved]
